FAERS Safety Report 7992257-5 (Version None)
Quarter: 2011Q4

REPORT INFORMATION
  Report Type: 
  Country: None (occurrence: None)
  Receive Date: 20111219
  Receipt Date: 20110621
  Transmission Date: 20120403
  Serious: No
  Sender: FDA-Public Use
  Company Number: US-ASTRAZENECA-2011SE37450

PATIENT
  Sex: Female

DRUGS (1)
  1. CRESTOR [Suspect]
     Dosage: DAILY
     Route: 048

REACTIONS (3)
  - DIZZINESS [None]
  - CONFUSIONAL STATE [None]
  - MEMORY IMPAIRMENT [None]
